FAERS Safety Report 19450439 (Version 1)
Quarter: 2021Q2

REPORT INFORMATION
  Report Type: Report from Study
  Country: DE (occurrence: DE)
  Receive Date: 20210622
  Receipt Date: 20210622
  Transmission Date: 20210717
  Serious: Yes (Other)
  Sender: FDA-Public Use
  Company Number: NVSC2021DE138697

PATIENT
  Age: 30 Year
  Sex: Male

DRUGS (1)
  1. EUCREAS [Suspect]
     Active Substance: METFORMIN HYDROCHLORIDE\VILDAGLIPTIN
     Indication: PRODUCT USED FOR UNKNOWN INDICATION
     Dosage: UNK
     Route: 065

REACTIONS (5)
  - Cerebrovascular accident [Unknown]
  - Peripheral arterial occlusive disease [Unknown]
  - Alcoholic liver disease [Unknown]
  - Liver disorder [Unknown]
  - Transient ischaemic attack [Unknown]
